FAERS Safety Report 8176872-4 (Version None)
Quarter: 2012Q1

REPORT INFORMATION
  Report Type: 
  Country: None (occurrence: None)
  Receive Date: 20120124
  Receipt Date: 20110308
  Transmission Date: 20120608
  Serious: Yes (Hospitalization)
  Sender: FDA-Public Use
  Company Number: WAES 1103USA01300

PATIENT
  Age: 18 Year
  Sex: Male
  Weight: 81.6475 kg

DRUGS (2)
  1. MORPHINE [Concomitant]
  2. INVANZ [Suspect]
     Indication: APPENDICITIS
     Dosage: 1 GM;1X;IV
     Route: 042
     Dates: start: 20110305, end: 20110306

REACTIONS (1)
  - RASH [None]
